FAERS Safety Report 21593865 (Version 2)
Quarter: 2023Q1

REPORT INFORMATION
  Report Type: Report from Study
  Country: US (occurrence: US)
  Receive Date: 20221115
  Receipt Date: 20230211
  Transmission Date: 20230417
  Serious: No
  Sender: FDA-Public Use
  Company Number: US-002147023-NVSC2022US254812

PATIENT
  Age: 13 Year
  Sex: Male

DRUGS (1)
  1. OMNITROPE [Suspect]
     Active Substance: SOMATROPIN
     Indication: Short stature
     Dosage: 0.30 ML
     Route: 065
     Dates: start: 20221108

REACTIONS (1)
  - Headache [Unknown]

NARRATIVE: CASE EVENT DATE: 20221110
